FAERS Safety Report 7972229-7 (Version None)
Quarter: 2011Q4

REPORT INFORMATION
  Report Type: 
  Country: None (occurrence: None)
  Receive Date: 20111213
  Receipt Date: 20111201
  Transmission Date: 20120403
  Serious: Yes (Congenital Anomaly, Other)
  Sender: FDA-Public Use
  Company Number: GB-BRISTOL-MYERS SQUIBB COMPANY-16089328

PATIENT
  Age: 1 Day
  Sex: Male

DRUGS (11)
  1. FERROUS SULFATE TAB [Concomitant]
  2. ATAZANAVIR [Suspect]
     Route: 064
     Dates: start: 20100801, end: 20110901
  3. NORVIR [Suspect]
     Route: 064
     Dates: start: 20100801, end: 20110901
  4. ASPIRIN [Concomitant]
  5. LABETALOL HCL [Concomitant]
  6. RAMIPRIL [Concomitant]
  7. TRUVADA [Suspect]
     Dosage: 1DF=TAB/CAPS.
     Route: 064
     Dates: start: 20100301, end: 20110901
  8. INSULIN [Concomitant]
  9. ZIDOVUDINE [Concomitant]
     Route: 042
  10. METFORMIN HCL [Concomitant]
  11. ATRIPLA [Suspect]
     Dosage: ALSO TAKEN FROM SEP-2011
     Route: 064
     Dates: start: 20100301, end: 20100801

REACTIONS (9)
  - GRUNTING [None]
  - CRYPTORCHISM [None]
  - CONJUNCTIVAL HAEMORRHAGE [None]
  - CONGENITAL TERATOMA [None]
  - RESPIRATORY DISTRESS [None]
  - CAESAREAN SECTION [None]
  - MATERNAL DRUGS AFFECTING FOETUS [None]
  - FACIAL PARESIS [None]
  - NEONATAL RESPIRATORY DISTRESS SYNDROME [None]
